FAERS Safety Report 15335082 (Version 1)
Quarter: 2018Q3

REPORT INFORMATION
  Report Type: Spontaneous
  Country: US (occurrence: US)
  Receive Date: 20180830
  Receipt Date: 20180830
  Transmission Date: 20181010
  Serious: Yes (Hospitalization, Other)
  Sender: FDA-Public Use
  Company Number: US-BRISTOL-MYERS SQUIBB COMPANY-BMS-2018-080925

PATIENT
  Age: 59 Year
  Sex: Male

DRUGS (1)
  1. NIVOLUMAB [Suspect]
     Active Substance: NIVOLUMAB
     Indication: HEAD AND NECK CANCER
     Dosage: 200 MG, Q2WK
     Route: 065
     Dates: start: 201507

REACTIONS (3)
  - Spontaneous haematoma [Recovered/Resolved]
  - Malignant neoplasm progression [Unknown]
  - Haemoglobin decreased [Recovering/Resolving]
